FAERS Safety Report 6022477-0 (Version None)
Quarter: 2008Q4

REPORT INFORMATION
  Report Type: 
  Country: None (occurrence: None)
  Receive Date: 20081221
  Receipt Date: 20081221
  Transmission Date: 20090506
  Serious: Yes (Death)
  Sender: FDA-Public Use
  Company Number: None

PATIENT
  Age: 95 Year
  Sex: Male
  Weight: 57.7 kg

DRUGS (13)
  1. SEROQUEL [Suspect]
     Indication: DEMENTIA ALZHEIMER'S TYPE
     Dosage: 150MG PO TOTAL DAILY 37.5MG-200MG TOTAL
     Route: 048
     Dates: start: 20070731, end: 20080312
  2. SEROQUEL [Suspect]
     Indication: DEMENTIA ALZHEIMER'S TYPE
     Dosage: 150MG PO TOTAL DAILY 37.5MG-200MG TOTAL
     Route: 048
     Dates: start: 20080312
  3. ASPIRIN [Concomitant]
  4. HYDROCHLOROTHIAZIDE [Concomitant]
  5. DOCUSATE NA [Concomitant]
  6. VERAPAMIL [Concomitant]
  7. TRAZODONE [Concomitant]
  8. SERTRALINE [Concomitant]
  9. PRILOSEC [Concomitant]
  10. GALANTAMINE HYDROBROMIDE [Concomitant]
  11. TIMOLOL OPHTH SOLN [Concomitant]
  12. TRAVATAN OPHTH SOLN [Concomitant]
  13. BRIMONIDINE OPHTH SOLN [Concomitant]

REACTIONS (4)
  - ACTIVITIES OF DAILY LIVING IMPAIRED [None]
  - AGITATION [None]
  - INSOMNIA [None]
  - LIVING IN RESIDENTIAL INSTITUTION [None]
